FAERS Safety Report 10479823 (Version 1)
Quarter: 2014Q3

REPORT INFORMATION
  Report Type: Spontaneous
  Country: US (occurrence: None)
  Receive Date: 20140926
  Receipt Date: 20140926
  Transmission Date: 20150326
  Serious: Yes (Life-Threatening, Hospitalization)
  Sender: FDA-Public Use
  Company Number: None

PATIENT
  Age: 82 Year
  Sex: Female
  Weight: 45.6 kg

DRUGS (9)
  1. COMBIGAN OPTHALMIC SOLUTION [Concomitant]
  2. MIRTAZEPINE [Concomitant]
  3. PRADAXA [Suspect]
     Active Substance: DABIGATRAN ETEXILATE MESYLATE
     Indication: ATRIAL FIBRILLATION
     Route: 048
  4. ENALAPRIL [Concomitant]
     Active Substance: ENALAPRIL
  5. FUROSEMIDE. [Concomitant]
     Active Substance: FUROSEMIDE
  6. BUDESONIDE/FORMOTEROL [Concomitant]
     Active Substance: BUDESONIDE\FORMOTEROL
  7. AMIODARONE [Concomitant]
     Active Substance: AMIODARONE
  8. CENTRUM SILVER [Concomitant]
     Active Substance: VITAMINS
  9. DABIGATRAN [Concomitant]
     Active Substance: DABIGATRAN

REACTIONS (5)
  - Cerebellar haemorrhage [None]
  - Nausea [None]
  - Blood pressure systolic increased [None]
  - Headache [None]
  - Vomiting [None]

NARRATIVE: CASE EVENT DATE: 20140910
